FAERS Safety Report 25736892 (Version 1)
Quarter: 2025Q3

REPORT INFORMATION
  Report Type: Spontaneous
  Country: EU (occurrence: EU)
  Receive Date: 20250828
  Receipt Date: 20250828
  Transmission Date: 20251021
  Serious: Yes (Death, Other)
  Sender: B. BRAUN MEDICAL INC.
  Company Number: EU-B. Braun Medical Inc.-FR-BBM-202503343

PATIENT
  Age: 61 Year
  Sex: Female

DRUGS (6)
  1. ACETAMINOPHEN [Suspect]
     Active Substance: ACETAMINOPHEN
     Indication: Intentional overdose
  2. ALCOHOL [Concomitant]
     Active Substance: ALCOHOL
  3. CEFUROXIME [Concomitant]
     Active Substance: CEFUROXIME
  4. FLUINDIONE [Concomitant]
     Active Substance: FLUINDIONE
  5. IRON [Concomitant]
     Active Substance: IRON
  6. ACETYLCYSTEINE [Concomitant]
     Active Substance: ACETYLCYSTEINE

REACTIONS (3)
  - Overdose [Fatal]
  - Toxicity to various agents [Fatal]
  - Bezoar [Fatal]
